FAERS Safety Report 17629035 (Version 1)
Quarter: 2020Q2

REPORT INFORMATION
  Report Type: Spontaneous
  Country: US (occurrence: US)
  Receive Date: 20200406
  Receipt Date: 20200406
  Transmission Date: 20200713
  Serious: No
  Sender: FDA-Public Use
  Company Number: US-ALLERGAN-1934418US

PATIENT
  Age: 61 Year
  Sex: Male

DRUGS (2)
  1. CANASA [Suspect]
     Active Substance: MESALAMINE
     Indication: PROCTITIS
     Dosage: 1 DF, QHS
     Route: 065
     Dates: start: 20190809
  2. HUMIRA [Concomitant]
     Active Substance: ADALIMUMAB

REACTIONS (2)
  - Product dose omission [Unknown]
  - Product quality issue [Unknown]
